FAERS Safety Report 5842030-9 (Version None)
Quarter: 2008Q3

REPORT INFORMATION
  Report Type: 
  Country: None (occurrence: None)
  Receive Date: 20080811
  Receipt Date: 20080811
  Transmission Date: 20090109
  Serious: Yes (Other)
  Sender: FDA-Public Use
  Company Number: None

PATIENT
  Age: 57 Year
  Sex: Male
  Weight: 83.9154 kg

DRUGS (1)
  1. SIMVASTTIN 20MG [Suspect]
     Indication: ARTERIOSCLEROSIS
     Dosage: 1 TABLET  1X AT BEDTIME  PO
     Route: 048
     Dates: start: 20080514, end: 20080719

REACTIONS (3)
  - ASTHENIA [None]
  - MYALGIA [None]
  - POST-TRAUMATIC PAIN [None]
